FAERS Safety Report 17950418 (Version 1)
Quarter: 2020Q2

REPORT INFORMATION
  Report Type: Spontaneous
  Country: US (occurrence: US)
  Receive Date: 20200626
  Receipt Date: 20200626
  Transmission Date: 20200714
  Serious: Yes (Hospitalization, Other)
  Sender: FDA-Public Use
  Company Number: US-AMGEN-USASP2020099029

PATIENT
  Age: 65 Year
  Sex: Female

DRUGS (14)
  1. GLIPIZIDE. [Concomitant]
     Active Substance: GLIPIZIDE
  2. NIFEDIPINE. [Concomitant]
     Active Substance: NIFEDIPINE
  3. LOSARTAN. [Concomitant]
     Active Substance: LOSARTAN
  4. CARBOPLATIN. [Concomitant]
     Active Substance: CARBOPLATIN
     Dosage: 730 MILLIGRAM
  5. DOCUSATE [Concomitant]
     Active Substance: DOCUSATE
  6. LIPITOR [Concomitant]
     Active Substance: ATORVASTATIN CALCIUM
  7. HYDROCHLOROTHIAZIDE. [Concomitant]
     Active Substance: HYDROCHLOROTHIAZIDE
  8. REGLAN [Concomitant]
     Active Substance: METOCLOPRAMIDE HYDROCHLORIDE
  9. GABAPENTIN. [Concomitant]
     Active Substance: GABAPENTIN
  10. MVASI [Suspect]
     Active Substance: BEVACIZUMAB-AWWB
     Indication: OVARIAN CANCER
     Dosage: 15 MILLIGRAM/KILOGRAM, Q3WK
     Route: 065
     Dates: start: 20200117
  11. VALIUM [Concomitant]
     Active Substance: DIAZEPAM
  12. METFORMIN [Concomitant]
     Active Substance: METFORMIN HYDROCHLORIDE
  13. PRILOSEC [Concomitant]
     Active Substance: OMEPRAZOLE MAGNESIUM
  14. DOCETAXEL. [Concomitant]
     Active Substance: DOCETAXEL
     Dosage: 70 MILLIGRAM, PER M2 WITH TOTAL DOSE OF 145 MG

REACTIONS (2)
  - Vaginal haemorrhage [Unknown]
  - Off label use [Unknown]

NARRATIVE: CASE EVENT DATE: 2020
